FAERS Safety Report 7964293-6 (Version None)
Quarter: 2011Q4

REPORT INFORMATION
  Report Type: 
  Country: None (occurrence: None)
  Receive Date: 20111208
  Receipt Date: 20111130
  Transmission Date: 20120403
  Serious: Yes (Hospitalization)
  Sender: FDA-Public Use
  Company Number: US-ASTELLAS-2011US007598

PATIENT
  Age: 66 Year
  Sex: Male

DRUGS (17)
  1. DOCETAXEL [Suspect]
     Indication: THROAT CANCER
     Dosage: UNK
     Route: 065
  2. ABH [Concomitant]
     Indication: NAUSEA
     Dosage: 1 DF, PRN, Q8HRS
     Route: 048
  3. ACETAMINOPHEN AND HYDROCODONE BITARTRATE [Concomitant]
     Indication: PAIN
     Dosage: UNK
     Route: 048
  4. ONDANSETRON [Concomitant]
     Indication: NAUSEA
     Dosage: 1 DF, Q8 HOURS
     Route: 048
  5. ONDANSETRON [Concomitant]
     Indication: VOMITING
  6. ERLOTINIB HYDROCHLORIDE [Suspect]
     Dosage: 100 MG, UID/QD
     Route: 048
     Dates: start: 20111115
  7. LEXAPRO [Concomitant]
     Indication: MOOD ALTERED
     Dosage: 10 MG, UID/QD
     Route: 048
  8. MIRTAZAPINE [Concomitant]
     Indication: MOOD ALTERED
     Dosage: 1 DF, QHS
     Route: 048
  9. MAGNESIUM SULFATE [Concomitant]
     Indication: PRODUCT USED FOR UNKNOWN INDICATION
     Dosage: 2 G, PRN
     Route: 042
  10. ABH [Concomitant]
     Indication: VOMITING
  11. DEXAMETHASONE [Concomitant]
     Indication: NAUSEA
     Dosage: 1 DF, Q12 HOURS
     Route: 048
  12. IMODIUM [Concomitant]
     Indication: DIARRHOEA
     Dosage: UNK
     Route: 048
  13. VERAPAMIL [Concomitant]
     Indication: BLOOD PRESSURE
     Dosage: 180 MG, PRN
     Route: 048
  14. ERLOTINIB HYDROCHLORIDE [Suspect]
     Indication: THROAT CANCER
     Dosage: 150 MG, UID/QD
     Route: 048
     Dates: end: 20111104
  15. CISPLATIN [Suspect]
     Indication: THROAT CANCER
     Dosage: UNK
     Route: 065
  16. DEXAMETHASONE [Concomitant]
     Indication: VOMITING
  17. PEGFILGRASTIM [Concomitant]
     Indication: PRODUCT USED FOR UNKNOWN INDICATION
     Dosage: 6 MG, UNKNOWN/D
     Route: 059

REACTIONS (13)
  - NAUSEA [None]
  - DECREASED APPETITE [None]
  - VOMITING [None]
  - ABDOMINAL PAIN [None]
  - ANAEMIA [None]
  - DIARRHOEA [None]
  - NEUTROPENIC SEPSIS [None]
  - DEHYDRATION [None]
  - OFF LABEL USE [None]
  - FATIGUE [None]
  - URINARY TRACT INFECTION STAPHYLOCOCCAL [None]
  - ORAL MUCOSA ATROPHY [None]
  - HEADACHE [None]
